FAERS Safety Report 8581259-6 (Version None)
Quarter: 2012Q3

REPORT INFORMATION
  Report Type: 
  Country: None (occurrence: None)
  Receive Date: 20120809
  Receipt Date: 20120802
  Transmission Date: 20120928
  Serious: Yes (Other)
  Sender: FDA-Public Use
  Company Number: US-UCBSA-057689

PATIENT
  Age: 69 Year
  Sex: Female
  Weight: 76.4 kg

DRUGS (23)
  1. PROVENTIL [Concomitant]
     Indication: ASTHMA
     Dosage: 1 PUFF
     Route: 055
     Dates: start: 20110101
  2. ASPIRIN [Concomitant]
     Indication: CARDIOVASCULAR EVENT PROPHYLAXIS
     Dates: start: 20090101
  3. PERCOCET [Concomitant]
     Indication: RHEUMATOID ARTHRITIS
     Dosage: 1 TAB
     Dates: start: 20080101
  4. LIPOFLAVONOID [Concomitant]
     Indication: MEDICAL DIET
     Dates: start: 20110401
  5. ADVAIR DISKUS 100/50 [Concomitant]
     Indication: ASTHMA
     Dosage: 250/50, 1 PUFF
     Route: 055
     Dates: start: 20060201
  6. VITAMIN D [Concomitant]
     Indication: VITAMIN SUPPLEMENTATION
     Dates: start: 20110101
  7. METHOTREXATE [Concomitant]
     Dates: start: 20120207
  8. CERTOLIZUMAB PEGOL [Suspect]
     Dosage: DOSE: 400 MG
     Route: 058
     Dates: start: 20110629, end: 20110726
  9. VIMOVO [Concomitant]
     Indication: RHEUMATOID ARTHRITIS
     Dosage: 500/20 MG
     Dates: start: 20110201, end: 20120331
  10. METHOTREXATE [Concomitant]
     Indication: RHEUMATOID ARTHRITIS
     Dates: start: 20050101, end: 20120131
  11. RAMIPRIL [Concomitant]
     Indication: HYPERTENSION
     Dates: start: 20070101
  12. FOLIC ACID [Concomitant]
     Indication: VITAMIN SUPPLEMENTATION
     Dates: start: 20040201
  13. MULTI-VITAMIN [Concomitant]
     Indication: VITAMIN SUPPLEMENTATION
     Dates: start: 20010501
  14. ATROVENT [Concomitant]
     Indication: ASTHMA
     Dosage: 1 PUFF
     Route: 055
     Dates: start: 20110101
  15. CRESTOR [Concomitant]
     Indication: HYPERLIPIDAEMIA
     Dates: start: 20110401, end: 20120331
  16. LIPITOR [Concomitant]
     Indication: HYPERLIPIDAEMIA
     Dates: start: 20120402
  17. AMBIEN [Concomitant]
     Indication: INSOMNIA
     Dates: start: 20070101
  18. FISH OIL [Concomitant]
     Indication: MEDICAL DIET
     Dates: start: 20071001
  19. CALTRATE 600 + D [Concomitant]
     Indication: MEDICAL DIET
     Dates: start: 20071101
  20. CELEBREX [Concomitant]
     Indication: RHEUMATOID ARTHRITIS
     Dates: start: 20120401
  21. CERTOLIZUMAB PEGOL [Suspect]
     Dosage: DOSE: 200 MG
     Route: 058
     Dates: start: 20110809, end: 20120501
  22. SOTALOL HCL [Concomitant]
     Indication: LEFT VENTRICULAR DYSFUNCTION
     Dates: start: 20110301
  23. FLONASE [Concomitant]
     Indication: SEASONAL ALLERGY
     Dosage: 50 MCG, 1 SPRAY
     Dates: start: 20110625

REACTIONS (1)
  - STAPHYLOCOCCAL INFECTION [None]
